FAERS Safety Report 17014279 (Version 1)
Quarter: 2019Q4

REPORT INFORMATION
  Report Type: Spontaneous
  Country: US (occurrence: US)
  Receive Date: 20191111
  Receipt Date: 20191111
  Transmission Date: 20200122
  Serious: Yes (Other)
  Sender: FDA-Public Use
  Company Number: US-ROCHE-2457397

PATIENT

DRUGS (13)
  1. ATORVASTATIN [Concomitant]
     Active Substance: ATORVASTATIN
  2. METOPROLOL. [Concomitant]
     Active Substance: METOPROLOL
  3. ALLOPURINOL. [Concomitant]
     Active Substance: ALLOPURINOL
  4. PROAIR HFA [Concomitant]
     Active Substance: ALBUTEROL SULFATE
  5. WARFARIN [Concomitant]
     Active Substance: WARFARIN
  6. ESBRIET [Suspect]
     Active Substance: PIRFENIDONE
     Indication: PULMONARY FIBROSIS
     Route: 048
     Dates: start: 20191023
  7. IPRATROPIUM [Concomitant]
     Active Substance: IPRATROPIUM
  8. FUROSEMIDE. [Concomitant]
     Active Substance: FUROSEMIDE
  9. PREDNISONE. [Concomitant]
     Active Substance: PREDNISONE
  10. TAMSULOSIN [Concomitant]
     Active Substance: TAMSULOSIN
  11. GLUCOSAMINE [Concomitant]
     Active Substance: GLUCOSAMINE
  12. LOSARTAN POTASSIUM. [Concomitant]
     Active Substance: LOSARTAN POTASSIUM
  13. MONTELUKAST [Concomitant]
     Active Substance: MONTELUKAST SODIUM

REACTIONS (3)
  - Blood urine present [Unknown]
  - Bladder pain [Unknown]
  - Testicular pain [Unknown]
